FAERS Safety Report 5378514-X (Version None)
Quarter: 2007Q3

REPORT INFORMATION
  Report Type: 
  Country: None (occurrence: None)
  Receive Date: 20070705
  Receipt Date: 20070621
  Transmission Date: 20080115
  Serious: Yes (Other)
  Sender: FDA-Public Use
  Company Number: PHBS2007BR10561

PATIENT
  Age: 49 Year
  Sex: Female

DRUGS (2)
  1. GENTEAL (NVO) [Suspect]
     Indication: DRY EYE
     Dosage: 10 ML, QID
  2. CAPTOPRIL [Concomitant]
     Indication: HYPERTENSION
     Dosage: 25 MG/DAY
     Route: 048

REACTIONS (10)
  - EYE HAEMORRHAGE [None]
  - EYE IRRITATION [None]
  - EYE PAIN [None]
  - EYE PRURITUS [None]
  - INJURY [None]
  - MALAISE [None]
  - MASS EXCISION [None]
  - OCULAR HYPERAEMIA [None]
  - PLASTIC SURGERY [None]
  - POOR QUALITY SLEEP [None]
